FAERS Safety Report 24946220 (Version 1)
Quarter: 2025Q1

REPORT INFORMATION
  Report Type: Spontaneous
  Country: DE (occurrence: DE)
  Receive Date: 20250210
  Receipt Date: 20250210
  Transmission Date: 20250409
  Serious: Yes (Other)
  Sender: ALKEM
  Company Number: DE-ALKEM LABORATORIES LIMITED-DE-ALKEM-2024-17291

PATIENT
  Age: 36 Year
  Sex: Male

DRUGS (9)
  1. LINEZOLID [Suspect]
     Active Substance: LINEZOLID
     Indication: Tuberculosis
     Dosage: 600 MILLIGRAM, QD
     Route: 065
  2. LINEZOLID [Suspect]
     Active Substance: LINEZOLID
     Route: 065
  3. PRETOMANID [Suspect]
     Active Substance: PRETOMANID
     Indication: Tuberculosis
     Dosage: 200 MILLIGRAM, QD
     Route: 065
  4. SIRTURO [Suspect]
     Active Substance: BEDAQUILINE FUMARATE
     Indication: Tuberculosis
     Dosage: 400 MILLIGRAM, QD
     Route: 048
  5. SIRTURO [Suspect]
     Active Substance: BEDAQUILINE FUMARATE
     Dosage: 100 MILLIGRAM, QD
     Route: 048
  6. Bictegravir, Emtricitabine, Tenofovir [Concomitant]
     Indication: Product used for unknown indication
     Route: 065
  7. LEVETIRACETAM [Concomitant]
     Active Substance: LEVETIRACETAM
     Indication: Product used for unknown indication
     Route: 065
  8. PREDNISONE [Concomitant]
     Active Substance: PREDNISONE
     Indication: Product used for unknown indication
     Route: 065
  9. SULFAMETHOXAZOLE\TRIMETHOPRIM [Concomitant]
     Active Substance: SULFAMETHOXAZOLE\TRIMETHOPRIM
     Indication: Product used for unknown indication
     Route: 065

REACTIONS (1)
  - Thrombocytopenia [Recovered/Resolved]
